FAERS Safety Report 23146325 (Version 2)
Quarter: 2025Q1

REPORT INFORMATION
  Report Type: Report from Study
  Country: US (occurrence: US)
  Receive Date: 20231104
  Receipt Date: 20250305
  Transmission Date: 20250409
  Serious: No
  Sender: NOVARTIS
  Company Number: US-002147023-NVSC2023US236097

PATIENT
  Sex: Male

DRUGS (2)
  1. LEQVIO [Suspect]
     Active Substance: INCLISIRAN SODIUM
     Indication: Product used for unknown indication
     Route: 058
     Dates: start: 20231026
  2. LEQVIO [Suspect]
     Active Substance: INCLISIRAN SODIUM
     Route: 065

REACTIONS (4)
  - Poor quality sleep [Unknown]
  - Sinusitis [Unknown]
  - Pain in extremity [Unknown]
  - Rash [Unknown]
